FAERS Safety Report 16455846 (Version 2)
Quarter: 2021Q4

REPORT INFORMATION
  Report Type: Spontaneous
  Country: ES (occurrence: ES)
  Receive Date: 20190620
  Receipt Date: 20211012
  Transmission Date: 20220303
  Serious: Yes (Life-Threatening, Hospitalization, Other)
  Sender: FDA-Public Use
  Company Number: ES-AEMPS-503431

PATIENT
  Age: 54 Year
  Sex: Male
  Weight: 50 kg

DRUGS (6)
  1. ZOLPIDEM [Concomitant]
     Active Substance: ZOLPIDEM TARTRATE
     Indication: Insomnia
     Dosage: 10 MILLIGRAM, DAILY
     Route: 048
     Dates: start: 20170925
  2. TRAZODONE [Concomitant]
     Active Substance: TRAZODONE HYDROCHLORIDE
     Indication: Insomnia
     Dosage: 100 MILLIGRAM, DAILY
     Route: 048
     Dates: start: 20170925
  3. ENALAPRIL [Concomitant]
     Active Substance: ENALAPRIL
     Indication: Hypertension
     Dosage: 10 MILLIGRAM, DAILY
     Route: 048
     Dates: start: 20181023
  4. GEMFIBROZIL [Concomitant]
     Active Substance: GEMFIBROZIL
     Indication: Hypertriglyceridaemia
     Dosage: 900 MILLIGRAM, DAILY
     Route: 048
     Dates: start: 20170901
  5. ESOMEPRAZOLE [Concomitant]
     Active Substance: ESOMEPRAZOLE
     Indication: Dyspepsia
     Dosage: 40 MILLIGRAM, DAILY (28 TABLETS)
     Route: 048
     Dates: start: 20190522
  6. RANITIDINE [Suspect]
     Active Substance: RANITIDINE
     Indication: Dyspepsia
     Dosage: 300 MILLIGRAM, DAILY
     Dates: start: 20180419, end: 20190529

REACTIONS (1)
  - Syncope [Recovered/Resolved]

NARRATIVE: CASE EVENT DATE: 20190529
